FAERS Safety Report 25673457 (Version 1)
Quarter: 2025Q3

REPORT INFORMATION
  Report Type: Spontaneous
  Country: EU (occurrence: EU)
  Receive Date: 20250813
  Receipt Date: 20250813
  Transmission Date: 20251020
  Serious: Yes (Life-Threatening, Hospitalization, Other)
  Sender: BRISTOL-MYERS SQUIBB COMPANY
  Company Number: EU-BRISTOL-MYERS SQUIBB COMPANY-2025-108739

PATIENT
  Age: 64 Year
  Sex: Male

DRUGS (4)
  1. OPDIVO [Suspect]
     Active Substance: NIVOLUMAB
     Indication: Non-small cell lung cancer
     Dates: end: 20240426
  2. OPDIVO [Suspect]
     Active Substance: NIVOLUMAB
     Dates: start: 20240617
  3. YERVOY [Suspect]
     Active Substance: IPILIMUMAB
     Indication: Non-small cell lung cancer
     Dates: end: 20240426
  4. YERVOY [Suspect]
     Active Substance: IPILIMUMAB
     Dates: start: 20240617

REACTIONS (7)
  - Hypoprolactinaemia [Unknown]
  - Slow speech [Unknown]
  - Polydipsia [Unknown]
  - Polyuria [Unknown]
  - Hyponatraemia [Unknown]
  - Adrenal insufficiency [Unknown]
  - Cerebral atrophy [Unknown]
